FAERS Safety Report 7335307-1 (Version None)
Quarter: 2011Q1

REPORT INFORMATION
  Report Type: 
  Country: None (occurrence: None)
  Receive Date: 20110307
  Receipt Date: 20110225
  Transmission Date: 20110831
  Serious: Yes (Hospitalization)
  Sender: FDA-Public Use
  Company Number: PHHY2011US07314

PATIENT
  Sex: Female

DRUGS (11)
  1. PULMOZYME [Concomitant]
  2. XOPENEX [Concomitant]
  3. AZITHROMYCIN [Concomitant]
  4. CAYSTON [Concomitant]
     Dosage: ALTERNATES MONTHS FROM TOBI
  5. C-VITAMIN [Concomitant]
  6. HYPERTONIC SOLUTIONS [Concomitant]
  7. CALTRATE [Concomitant]
  8. TOBI [Suspect]
     Indication: CYSTIC FIBROSIS
     Dosage: 300 MG, BID
  9. ZYRTEC [Concomitant]
  10. FLONASE [Concomitant]
  11. PANCRELIPASE [Concomitant]

REACTIONS (3)
  - SINUSITIS [None]
  - STAPHYLOCOCCAL INFECTION [None]
  - INFECTION [None]
